FAERS Safety Report 12788342 (Version 1)
Quarter: 2016Q3

REPORT INFORMATION
  Report Type: Spontaneous
  Country: US (occurrence: US)
  Receive Date: 20160928
  Receipt Date: 20160928
  Transmission Date: 20161109
  Serious: Yes (Other)
  Sender: FDA-Public Use
  Company Number: None

PATIENT
  Age: 31 Year
  Sex: Male
  Weight: 83.92 kg

DRUGS (11)
  1. VRAYLAR [Suspect]
     Active Substance: CARIPRAZINE
     Indication: DEPRESSION
     Dosage: 1 PILL 1 TIM DAILY, MOUTH
     Route: 048
     Dates: start: 20160809, end: 20160913
  2. CITALOPRAM [Concomitant]
     Active Substance: CITALOPRAM HYDROBROMIDE
  3. GEMFIBROZIL. [Concomitant]
     Active Substance: GEMFIBROZIL
  4. VRAYLAR [Suspect]
     Active Substance: CARIPRAZINE
     Indication: ANXIETY
     Dosage: 1 PILL 1 TIM DAILY, MOUTH
     Route: 048
     Dates: start: 20160809, end: 20160913
  5. PALIPRIDONE [Concomitant]
  6. TUMS [Concomitant]
     Active Substance: CALCIUM CARBONATE
  7. ONDANSETRON [Concomitant]
     Active Substance: ONDANSETRON
  8. PROPANOLOL [Concomitant]
     Active Substance: PROPRANOLOL HYDROCHLORIDE
  9. OMEPRAZOLE. [Concomitant]
     Active Substance: OMEPRAZOLE
  10. AMITRIPTYLINE [Concomitant]
     Active Substance: AMITRIPTYLINE
  11. RANITIDINE. [Concomitant]
     Active Substance: RANITIDINE

REACTIONS (10)
  - Liver disorder [None]
  - Gallbladder disorder [None]
  - Blood triglycerides increased [None]
  - Feeding disorder [None]
  - Vomiting [None]
  - Abdominal pain upper [None]
  - Hepatic steatosis [None]
  - Insomnia [None]
  - Pancreatic disorder [None]
  - Gastrooesophageal reflux disease [None]

NARRATIVE: CASE EVENT DATE: 20160913
